FAERS Safety Report 18599968 (Version 1)
Quarter: 2020Q4

REPORT INFORMATION
  Report Type: Spontaneous
  Country: CN (occurrence: CN)
  Receive Date: 20201210
  Receipt Date: 20201210
  Transmission Date: 20210114
  Serious: Yes (Hospitalization)
  Sender: FDA-Public Use
  Company Number: CN-BAYER-2020-261792

PATIENT
  Age: 48 Year
  Sex: Male

DRUGS (1)
  1. GLUCOBAY [Suspect]
     Active Substance: ACARBOSE
     Indication: DIABETES MELLITUS
     Dosage: 25 MG, TID
     Route: 048
     Dates: start: 20201001, end: 20201107

REACTIONS (2)
  - Hepatic function abnormal [Recovering/Resolving]
  - Blood glucose increased [None]

NARRATIVE: CASE EVENT DATE: 20201107
